FAERS Safety Report 20691985 (Version 2)
Quarter: 2022Q2

REPORT INFORMATION
  Report Type: Spontaneous
  Country: BR (occurrence: BR)
  Receive Date: 20220408
  Receipt Date: 20220422
  Transmission Date: 20220720
  Serious: Yes (Other)
  Sender: FDA-Public Use
  Company Number: BR-BAXTER-2022BAX007194

PATIENT
  Age: 50 Year
  Sex: Female

DRUGS (2)
  1. SODIUM CHLORIDE [Suspect]
     Active Substance: SODIUM CHLORIDE
     Indication: Medication dilution
     Route: 042
     Dates: start: 20220225
  2. IRON SUCROSE [Suspect]
     Active Substance: IRON SUCROSE
     Indication: Product used for unknown indication
     Dosage: DOSAGE: 2 BOTTLES + 500 ML PHYSIOLOGICAL SALINE WITH AN INFUSION TIME OF 1 HOUR AND 56 MINUTES
     Route: 042
     Dates: start: 20220225

REACTIONS (4)
  - Syncope [Recovered/Resolved]
  - Hypoaesthesia [Recovered/Resolved]
  - Paraesthesia [Recovered/Resolved]
  - Oedema peripheral [Recovered/Resolved]

NARRATIVE: CASE EVENT DATE: 20220225
